FAERS Safety Report 4325530-2 (Version None)
Quarter: 2004Q1

REPORT INFORMATION
  Report Type: 
  Country: None (occurrence: None)
  Receive Date: 20040324
  Receipt Date: 20040310
  Transmission Date: 20041129
  Serious: Yes (Other)
  Sender: FDA-Public Use
  Company Number: US_0403101549

PATIENT
  Age: 61 Year
  Sex: Male
  Weight: 98 kg

DRUGS (1)
  1. GLUCAGON [Suspect]
     Indication: DIABETES MELLITUS

REACTIONS (3)
  - COMA [None]
  - GLOSSOPTOSIS [None]
  - PHARMACEUTICAL PRODUCT COMPLAINT [None]
